FAERS Safety Report 21536925 (Version 1)
Quarter: 2022Q4

REPORT INFORMATION
  Report Type: Spontaneous
  Country: US (occurrence: None)
  Receive Date: 20221101
  Receipt Date: 20221101
  Transmission Date: 20230113
  Serious: No
  Sender: FDA-Public Use
  Company Number: None

PATIENT
  Age: 41 Year
  Sex: Female
  Weight: 61.2 kg

DRUGS (8)
  1. TYRVAYA [Suspect]
     Active Substance: VARENICLINE TARTRATE
     Indication: Meibomian gland dysfunction
     Dosage: FREQUENCY : EVERY 12 HOURS;?
     Route: 061
     Dates: start: 20221021, end: 20221030
  2. Spironalactone [Concomitant]
  3. RETIN-A [Concomitant]
     Active Substance: TRETINOIN
  4. Sulfacetamide Sodum Topicical Suspensino [Concomitant]
  5. MULTI-VITAMIN [Concomitant]
     Active Substance: .ALPHA.-TOCOPHEROL ACETATE, DL-\ASCORBIC ACID\CYANOCOBALAMIN\FLUORIDE ION\FOLIC ACID\NIACIN\PYRIDOXI
  6. FISH OIL [Concomitant]
     Active Substance: FISH OIL
  7. COENZYME Q10 [Concomitant]
     Active Substance: DIETARY SUPPLEMENT\UBIDECARENONE
  8. MELATONIN [Concomitant]
     Active Substance: MELATONIN

REACTIONS (3)
  - Epistaxis [None]
  - Nasal congestion [None]
  - Therapy cessation [None]

NARRATIVE: CASE EVENT DATE: 20221001
